FAERS Safety Report 9122829 (Version 2)
Quarter: 2013Q2

REPORT INFORMATION
  Report Type: Report from Study
  Country: CA (occurrence: CA)
  Receive Date: 20130227
  Receipt Date: 20130617
  Transmission Date: 20140414
  Serious: Yes (Other)
  Sender: FDA-Public Use
  Company Number: CA-JNJFOC-20130213988

PATIENT
  Age: 67 Year
  Sex: Female
  Weight: 56 kg

DRUGS (7)
  1. REMICADE [Suspect]
     Indication: RHEUMATOID ARTHRITIS
     Route: 042
     Dates: start: 20040505
  2. CRESTOR [Concomitant]
     Route: 065
  3. FOSAMAX [Concomitant]
     Route: 065
  4. APO-FOLIC [Concomitant]
     Route: 065
  5. CELEBREX [Concomitant]
     Route: 065
  6. PLAQUENIL [Concomitant]
     Route: 065
  7. METHOTREXATE [Concomitant]
     Route: 065

REACTIONS (3)
  - Bronchitis [Unknown]
  - Pulmonary mass [Unknown]
  - Pulmonary mass [Unknown]
